FAERS Safety Report 9641142 (Version 2)
Quarter: 2016Q3

REPORT INFORMATION
  Report Type: Report from Study
  Country: JP (occurrence: JP)
  Receive Date: 20131023
  Receipt Date: 20160706
  Transmission Date: 20161109
  Serious: Yes (Death, Hospitalization)
  Sender: FDA-Public Use
  Company Number: JP-SA-2013SA106421

PATIENT
  Age: 57 Year
  Sex: Female
  Weight: 57.4 kg

DRUGS (9)
  1. DOPAMINE HYDROCHLORIDE. [Concomitant]
     Active Substance: DOPAMINE HYDROCHLORIDE
     Indication: SEPTIC SHOCK
     Dates: start: 20111117, end: 20111206
  2. HUMULIN R [Concomitant]
     Active Substance: INSULIN HUMAN
     Indication: HYPERGLYCAEMIA
     Dates: start: 20111126, end: 20111206
  3. RESTAMIN KOWA [Concomitant]
     Indication: PRURITUS
     Dates: start: 20111126, end: 20111206
  4. BUMINATE [Concomitant]
     Active Substance: ALBUMIN HUMAN
     Indication: HYPOALBUMINAEMIA
     Dates: start: 20111128, end: 20111203
  5. GEBEN [Concomitant]
     Active Substance: SILVER SULFADIAZINE
     Indication: ULCER
     Dates: start: 20111121, end: 20111206
  6. PRIDOL [Concomitant]
     Active Substance: METHYLPREDNISOLONE SODIUM SUCCINATE
     Indication: GRAFT VERSUS HOST DISEASE
     Dates: start: 20111125, end: 20111125
  7. THYMOGLOBULIN [Suspect]
     Active Substance: LAPINE T-LYMPHOCYTE IMMUNE GLOBULIN
     Indication: ACUTE GRAFT VERSUS HOST DISEASE
     Route: 042
     Dates: start: 20111125, end: 20111125
  8. JUVELA [Concomitant]
     Active Substance: .ALPHA.-TOCOPHEROL\RETINOL
     Indication: PRURITUS
     Dates: start: 20111116, end: 20111206
  9. POLARAMINE [Concomitant]
     Active Substance: DEXCHLORPHENIRAMINE MALEATE
     Indication: PROPHYLAXIS
     Dates: start: 20111125, end: 20111125

REACTIONS (7)
  - Anxiety disorder [Recovered/Resolved]
  - Acidosis [Fatal]
  - Cerebral haemorrhage [Fatal]
  - Blood pressure decreased [Not Recovered/Not Resolved]
  - Cardiac failure acute [Not Recovered/Not Resolved]
  - Seizure [Fatal]
  - Sepsis [Fatal]

NARRATIVE: CASE EVENT DATE: 20111201
